FAERS Safety Report 20495853 (Version 18)
Quarter: 2023Q1

REPORT INFORMATION
  Report Type: Report from Study
  Country: CO (occurrence: CO)
  Receive Date: 20220221
  Receipt Date: 20230310
  Transmission Date: 20230418
  Serious: Yes (Life-Threatening, Hospitalization, Other)
  Sender: FDA-Public Use
  Company Number: CO-NOVARTISPH-NVSC2022CO003524

PATIENT
  Age: 54 Year
  Sex: Female

DRUGS (14)
  1. ELTROMBOPAG OLAMINE [Suspect]
     Active Substance: ELTROMBOPAG OLAMINE
     Indication: Immune thrombocytopenia
     Dosage: 100 MG, QD (2 OF 50 MG)
     Route: 048
     Dates: start: 20191111
  2. ELTROMBOPAG OLAMINE [Suspect]
     Active Substance: ELTROMBOPAG OLAMINE
     Dosage: 25 MG (TWO IN THE MORNING AND TWO AT NIGHT)
     Route: 048
     Dates: start: 20191111
  3. ELTROMBOPAG OLAMINE [Suspect]
     Active Substance: ELTROMBOPAG OLAMINE
     Dosage: 50 MG, QD
     Route: 048
     Dates: start: 20191118
  4. ELTROMBOPAG OLAMINE [Suspect]
     Active Substance: ELTROMBOPAG OLAMINE
     Dosage: 100 MG, QD
     Route: 048
  5. ELTROMBOPAG OLAMINE [Suspect]
     Active Substance: ELTROMBOPAG OLAMINE
     Dosage: 2 DOSAGE FORM, Q12H (TWO OF 50 MG)
     Route: 048
  6. ELTROMBOPAG OLAMINE [Suspect]
     Active Substance: ELTROMBOPAG OLAMINE
     Dosage: 2 DOSAGE FORM, Q12H (2 OF 25 MG)
     Route: 048
  7. ELTROMBOPAG OLAMINE [Suspect]
     Active Substance: ELTROMBOPAG OLAMINE
     Dosage: UNK
     Route: 048
  8. ELTROMBOPAG OLAMINE [Suspect]
     Active Substance: ELTROMBOPAG OLAMINE
     Dosage: 75 MG, Q12H
     Route: 048
  9. ELTROMBOPAG OLAMINE [Suspect]
     Active Substance: ELTROMBOPAG OLAMINE
     Dosage: 3 DOSAGE FORM, Q12H (3 OF 25 MG)
     Route: 065
  10. ELTROMBOPAG OLAMINE [Suspect]
     Active Substance: ELTROMBOPAG OLAMINE
     Dosage: 150 MG, Q12H
     Route: 048
  11. ELTROMBOPAG OLAMINE [Suspect]
     Active Substance: ELTROMBOPAG OLAMINE
     Dosage: 75 MG, Q12H
     Route: 048
  12. ELTROMBOPAG OLAMINE [Suspect]
     Active Substance: ELTROMBOPAG OLAMINE
     Dosage: 75 MG/3, EVERY 12 HOURS
     Route: 048
  13. ELTROMBOPAG OLAMINE [Suspect]
     Active Substance: ELTROMBOPAG OLAMINE
     Dosage: 150 MG
     Route: 048
  14. ELTROMBOPAG OLAMINE [Suspect]
     Active Substance: ELTROMBOPAG OLAMINE
     Dosage: 100 MG, QD (SHE TAKE ONE AT 10 AM AND ANOTHER AT 10 PM)
     Route: 048
     Dates: start: 20230219

REACTIONS (10)
  - Platelet count decreased [Unknown]
  - Thrombosis [Unknown]
  - Peripheral swelling [Unknown]
  - Blood glucose increased [Unknown]
  - Gingival bleeding [Unknown]
  - Discouragement [Unknown]
  - General physical health deterioration [Unknown]
  - Product availability issue [Unknown]
  - Incorrect dose administered [Unknown]
  - Off label use [Unknown]

NARRATIVE: CASE EVENT DATE: 20200101
